FAERS Safety Report 19587442 (Version 1)
Quarter: 2021Q3

REPORT INFORMATION
  Report Type: Spontaneous
  Country: US (occurrence: US)
  Receive Date: 20210720
  Receipt Date: 20210720
  Transmission Date: 20211014
  Serious: Yes (Disabling, Other)
  Sender: FDA-Public Use
  Company Number: None

PATIENT
  Age: 48 Year
  Sex: Female
  Weight: 94.5 kg

DRUGS (5)
  1. ROUVASTATIN [Concomitant]
     Active Substance: ROSUVASTATIN
  2. PAROXETINE. [Concomitant]
     Active Substance: PAROXETINE
  3. METFORMIN [Suspect]
     Active Substance: METFORMIN HYDROCHLORIDE
     Indication: DIABETES MELLITUS
  4. CHANTIX [Suspect]
     Active Substance: VARENICLINE TARTRATE
  5. METFORMIN [Suspect]
     Active Substance: METFORMIN HYDROCHLORIDE
     Indication: EX-TOBACCO USER

REACTIONS (1)
  - Vomiting [None]

NARRATIVE: CASE EVENT DATE: 20200127
